FAERS Safety Report 20539017 (Version 1)
Quarter: 2022Q1

REPORT INFORMATION
  Report Type: Spontaneous
  Country: US (occurrence: None)
  Receive Date: 20220301
  Receipt Date: 20220301
  Transmission Date: 20220424
  Serious: Yes (Death)
  Sender: FDA-Public Use
  Company Number: None

PATIENT
  Age: 91 Year
  Sex: Female

DRUGS (1)
  1. FENTANYL [Suspect]
     Active Substance: FENTANYL
     Dosage: OTHER STRENGTH : 25MCG/72HR PATCHES;?

REACTIONS (1)
  - Death [None]

NARRATIVE: CASE EVENT DATE: 20220301
